FAERS Safety Report 22252862 (Version 3)
Quarter: 2023Q2

REPORT INFORMATION
  Report Type: Other
  Country: US (occurrence: None)
  Receive Date: 20230426
  Receipt Date: 20230621
  Transmission Date: 20230722
  Serious: Yes (Other)
  Sender: FDA-Public Use
  Company Number: US-ROCHE-3335848

PATIENT
  Age: 73 Year
  Sex: Male
  Weight: 72.186 kg

DRUGS (5)
  1. RITUXAN [Suspect]
     Active Substance: RITUXIMAB
     Indication: Follicular lymphoma
     Route: 065
  2. CYCLOPHOSPHAMIDE [Concomitant]
     Active Substance: CYCLOPHOSPHAMIDE
  3. EPIRUBICIN [Concomitant]
     Active Substance: EPIRUBICIN
  4. ONCOVIN [Concomitant]
     Active Substance: VINCRISTINE SULFATE
  5. PREDNISONE [Concomitant]
     Active Substance: PREDNISONE

REACTIONS (3)
  - Myocardial infarction [Unknown]
  - Diabetes mellitus [Unknown]
  - Hypertension [Unknown]
